FAERS Safety Report 24341724 (Version 1)
Quarter: 2024Q3

REPORT INFORMATION
  Report Type: Spontaneous
  Country: US (occurrence: US)
  Receive Date: 20240920
  Receipt Date: 20240920
  Transmission Date: 20241017
  Serious: No
  Sender: SANOFI AVENTIS
  Company Number: US-SANOFI-02211027

PATIENT
  Age: 78 Year
  Sex: Female

DRUGS (2)
  1. TOUJEO [Suspect]
     Active Substance: INSULIN GLARGINE
     Indication: Type 2 diabetes mellitus
     Dosage: 60 UNITS IN THE MORNING AND 30 UNITS AT NIGHT
     Route: 065
  2. BASAGLAR [Concomitant]
     Active Substance: INSULIN GLARGINE

REACTIONS (1)
  - Product prescribing issue [Unknown]
